FAERS Safety Report 6405097-5 (Version None)
Quarter: 2009Q4

REPORT INFORMATION
  Report Type: 
  Country: None (occurrence: None)
  Receive Date: 20091013
  Receipt Date: 20091006
  Transmission Date: 20100525
  Serious: Yes (Hospitalization, Other)
  Sender: FDA-Public Use
  Company Number: 09NL001217

PATIENT
  Age: 80 Year
  Sex: Female

DRUGS (12)
  1. PAROXETINE HCL [Suspect]
     Indication: DRUG USE FOR UNKNOWN INDICATION
     Dosage: 20 MG, QD
  2. BUMETANIDE [Concomitant]
  3. METFORMIN HCL [Concomitant]
  4. SIMVASTATIN [Concomitant]
  5. ACENOCOUMAROL (ACENOCOUMAROL) [Concomitant]
  6. PREDNISONE TAB [Concomitant]
  7. ALENDRONATE SODIUM [Concomitant]
  8. CALCIUM CARBONATE [Concomitant]
  9. PANTOPRAZOLE SODIUM [Concomitant]
  10. ACETAMINOPHEN W/ CODEINE [Concomitant]
  11. OXYCODONE HCL [Concomitant]
  12. TEMAZEPAM [Concomitant]

REACTIONS (11)
  - DIPLOPIA [None]
  - DIZZINESS [None]
  - ENOPHTHALMOS [None]
  - EYE SWELLING [None]
  - FACE INJURY [None]
  - FACIAL BONES FRACTURE [None]
  - FALL [None]
  - GAZE PALSY [None]
  - OCULAR RETROBULBAR HAEMORRHAGE [None]
  - PERIORBITAL HAEMATOMA [None]
  - THROMBIN TIME PROLONGED [None]
